FAERS Safety Report 8239282-7 (Version None)
Quarter: 2012Q1

REPORT INFORMATION
  Report Type: 
  Country: None (occurrence: None)
  Receive Date: 20120328
  Receipt Date: 20120321
  Transmission Date: 20120608
  Serious: No
  Sender: FDA-Public Use
  Company Number: US-BIOGENIDEC-2012BI010106

PATIENT
  Sex: Female

DRUGS (1)
  1. AVONEX [Suspect]
     Indication: MULTIPLE SCLEROSIS
     Route: 030
     Dates: start: 19990131

REACTIONS (4)
  - MULTIPLE SCLEROSIS RELAPSE [None]
  - FATIGUE [None]
  - FREQUENT BOWEL MOVEMENTS [None]
  - MULTIPLE ALLERGIES [None]
